FAERS Safety Report 10050770 (Version 1)
Quarter: 2014Q2

REPORT INFORMATION
  Report Type: Spontaneous
  Country: US (occurrence: US)
  Receive Date: 20140401
  Receipt Date: 20140401
  Transmission Date: 20141212
  Serious: No
  Sender: FDA-Public Use
  Company Number: US-ASTRAZENECA-2013SE69606

PATIENT
  Age: 71 Year
  Sex: Female
  Weight: 51.3 kg

DRUGS (10)
  1. NEXIUM [Suspect]
     Indication: COUGH
     Route: 048
     Dates: start: 2008, end: 2011
  2. NEXIUM [Suspect]
     Indication: GASTROOESOPHAGEAL REFLUX DISEASE
     Route: 048
     Dates: start: 2008, end: 2011
  3. NEXIUM [Suspect]
     Indication: COUGH
     Route: 048
     Dates: start: 2011, end: 2013
  4. NEXIUM [Suspect]
     Indication: GASTROOESOPHAGEAL REFLUX DISEASE
     Route: 048
     Dates: start: 2011, end: 2013
  5. NEXIUM [Suspect]
     Indication: COUGH
     Route: 048
     Dates: start: 201306
  6. NEXIUM [Suspect]
     Indication: GASTROOESOPHAGEAL REFLUX DISEASE
     Route: 048
     Dates: start: 201306
  7. NEXIUM [Suspect]
     Indication: COUGH
     Route: 048
     Dates: start: 201306
  8. NEXIUM [Suspect]
     Indication: GASTROOESOPHAGEAL REFLUX DISEASE
     Route: 048
     Dates: start: 201306
  9. SYNTHROID [Concomitant]
     Indication: THYROID DISORDER
     Route: 048
     Dates: start: 1993
  10. BONIVA INFUSIONS [Concomitant]
     Indication: OSTEOPOROSIS
     Route: 042
     Dates: start: 2009, end: 201303

REACTIONS (4)
  - Cough [Not Recovered/Not Resolved]
  - Osteoporosis [Not Recovered/Not Resolved]
  - Intentional product misuse [Recovered/Resolved]
  - Drug ineffective [Recovered/Resolved]
